FAERS Safety Report 8011259-6 (Version None)
Quarter: 2011Q4

REPORT INFORMATION
  Report Type: 
  Country: None (occurrence: None)
  Receive Date: 20111227
  Receipt Date: 20111227
  Transmission Date: 20120403
  Serious: Yes (Other)
  Sender: FDA-Public Use
  Company Number: None

PATIENT
  Age: 48 Year
  Sex: Female
  Weight: 54.431 kg

DRUGS (1)
  1. CREST 3D WHITE VIVID MINT [Suspect]
     Indication: DENTAL CLEANING
     Dates: start: 20111224, end: 20111224

REACTIONS (1)
  - COUGH [None]
